FAERS Safety Report 10665044 (Version 1)
Quarter: 2014Q4

REPORT INFORMATION
  Report Type: Spontaneous
  Country: CZ (occurrence: CZ)
  Receive Date: 20141219
  Receipt Date: 20141219
  Transmission Date: 20150529
  Serious: Yes (Hospitalization)
  Sender: FDA-Public Use
  Company Number: CZ-EMD SERONO-8002589

PATIENT
  Age: 39 Year
  Sex: Female

DRUGS (2)
  1. REBIF [Suspect]
     Active Substance: INTERFERON BETA-1A
     Indication: MULTIPLE SCLEROSIS
     Dates: start: 2003, end: 201004
  2. REBIF [Suspect]
     Active Substance: INTERFERON BETA-1A
     Dates: start: 201004, end: 201412

REACTIONS (2)
  - Pulmonary arterial hypertension [Recovering/Resolving]
  - Pulmonary embolism [Unknown]
